FAERS Safety Report 18280820 (Version 2)
Quarter: 2020Q4

REPORT INFORMATION
  Report Type: Spontaneous
  Country: US (occurrence: US)
  Receive Date: 20200917
  Receipt Date: 20201016
  Transmission Date: 20210113
  Serious: Yes (Hospitalization, Other)
  Sender: FDA-Public Use
  Company Number: US-AMGEN-USASP2020149493

PATIENT
  Age: 21 Year
  Sex: Female

DRUGS (4)
  1. EPOGEN [Suspect]
     Active Substance: ERYTHROPOIETIN
     Dosage: 10000 UNIT, QD
     Route: 065
     Dates: start: 2020
  2. EPOGEN [Suspect]
     Active Substance: ERYTHROPOIETIN
     Indication: SICKLE CELL ANAEMIA
     Dosage: 1000 UNIT, QD (AS NEEDED BASIS OFF AND ON)
     Route: 065
     Dates: start: 2019
  3. EPOGEN [Suspect]
     Active Substance: ERYTHROPOIETIN
     Dosage: 10000 UNIT, QD
     Route: 065
     Dates: start: 2020
  4. EPOGEN [Suspect]
     Active Substance: ERYTHROPOIETIN
     Dosage: 20000 UNIT, QD (DOSE INCREASED)
     Route: 065
     Dates: start: 20200830

REACTIONS (4)
  - Anti-erythropoietin antibody positive [Unknown]
  - Haemoglobin decreased [Not Recovered/Not Resolved]
  - Drug ineffective for unapproved indication [Not Recovered/Not Resolved]
  - Off label use [Unknown]

NARRATIVE: CASE EVENT DATE: 2019
